FAERS Safety Report 8908409 (Version 1)
Quarter: 2012Q4

REPORT INFORMATION
  Report Type: 
  Country: US (occurrence: US)
  Receive Date: 20121114
  Receipt Date: 20121114
  Transmission Date: 20130627
  Serious: No
  Sender: FDA-Public Use
  Company Number: US-PFIZER INC-2012283456

PATIENT
  Age: 50 Year
  Sex: Male
  Weight: 72.56 kg

DRUGS (2)
  1. ADVIL CONGESTION RELIEF [Suspect]
     Indication: NASAL CONGESTION
     Dosage: 200/10 mg, daily
     Dates: start: 20121111, end: 20121112
  2. VISTARIL [Concomitant]
     Indication: SLEEP PROBLEM
     Dosage: 100 mg, daily

REACTIONS (1)
  - Drug ineffective [Unknown]
